FAERS Safety Report 4609175-2 (Version None)
Quarter: 2005Q1

REPORT INFORMATION
  Report Type: 
  Country: None (occurrence: None)
  Receive Date: 20050311
  Receipt Date: 20050302
  Transmission Date: 20050727
  Serious: Yes (Death)
  Sender: FDA-Public Use
  Company Number: USA-2005-0019134

PATIENT
  Age: 69 Year
  Sex: Female
  Weight: 26.3 kg

DRUGS (1)
  1. OXYCONTIN [Suspect]
     Indication: PAIN
     Dosage: MG,

REACTIONS (1)
  - MYOCARDIAL INFARCTION [None]
